FAERS Safety Report 5334649-9 (Version None)
Quarter: 2007Q2

REPORT INFORMATION
  Report Type: 
  Country: None (occurrence: None)
  Receive Date: 20070525
  Receipt Date: 20070518
  Transmission Date: 20071010
  Serious: Yes (Death)
  Sender: FDA-Public Use
  Company Number: B0468315A

PATIENT
  Age: 93 Year
  Sex: Male

DRUGS (3)
  1. MODACIN [Suspect]
     Indication: URINARY TRACT INFECTION
     Dosage: 1G PER DAY
     Route: 042
     Dates: start: 20070413, end: 20070420
  2. FUROSEMIDE [Concomitant]
     Dosage: 20MG PER DAY
  3. PANIPENEM BETAMIPRON [Concomitant]

REACTIONS (3)
  - HEPATIC FUNCTION ABNORMAL [None]
  - PNEUMONIA [None]
  - RESPIRATORY ARREST [None]
